FAERS Safety Report 7285485-8 (Version None)
Quarter: 2011Q1

REPORT INFORMATION
  Report Type: 
  Country: None (occurrence: None)
  Receive Date: 20110201
  Receipt Date: 20110118
  Transmission Date: 20110831
  Serious: Yes (Hospitalization)
  Sender: FDA-Public Use
  Company Number: B0696468A

PATIENT
  Age: 20 Month
  Sex: Male

DRUGS (1)
  1. LAMOTRIGINE [Suspect]
     Dosage: 150 MG/ORAL
     Route: 048

REACTIONS (9)
  - TONIC CLONIC MOVEMENTS [None]
  - MENTAL STATUS CHANGES [None]
  - CONVULSION [None]
  - ATAXIA [None]
  - TOXICITY TO VARIOUS AGENTS [None]
  - ACCIDENTAL DRUG INTAKE BY CHILD [None]
  - CRYING [None]
  - ACCIDENTAL OVERDOSE [None]
  - VOMITING [None]
